FAERS Safety Report 9900124 (Version 1)
Quarter: 2014Q1

REPORT INFORMATION
  Report Type: Other
  Country: KR (occurrence: KR)
  Receive Date: 20140214
  Receipt Date: 20140214
  Transmission Date: 20141002
  Serious: Yes (Hospitalization)
  Sender: FDA-Public Use
  Company Number: SANTEN INC.-INC-14-000035

PATIENT
  Age: 74 Year
  Sex: Female

DRUGS (4)
  1. GENERIC (LEVOFLOXACIN 0.5%) [Suspect]
     Indication: CATARACT OPERATION
     Route: 061
  2. LEVOFLOXACIN [Concomitant]
     Route: 048
  3. STREPTOKINASE [Concomitant]
     Route: 048
  4. FLUOROMETHOLONE [Concomitant]
     Route: 061

REACTIONS (1)
  - Clostridium difficile colitis [Recovered/Resolved]
